FAERS Safety Report 7999118-6 (Version None)
Quarter: 2011Q4

REPORT INFORMATION
  Report Type: 
  Country: None (occurrence: None)
  Receive Date: 20111221
  Receipt Date: 20111216
  Transmission Date: 20120403
  Serious: Yes (Hospitalization, Other)
  Sender: FDA-Public Use
  Company Number: FR-PFIZER INC-2011281396

PATIENT
  Age: 63 Year
  Sex: Male

DRUGS (5)
  1. ALDACTONE [Suspect]
     Dosage: 150 MG, DAILY
     Route: 048
     Dates: start: 20111014, end: 20111018
  2. ALDACTONE [Suspect]
     Dosage: 75 MG, DAILY
     Route: 048
     Dates: start: 20111012
  3. ALDACTONE [Suspect]
     Indication: ASCITES
     Dosage: 75 MG, DAILY
     Route: 048
     Dates: start: 20110911, end: 20111010
  4. ALDACTONE [Suspect]
     Dosage: 50 MG, DAILY
     Route: 048
     Dates: start: 20111010
  5. SECTRAL [Concomitant]
     Indication: HYPERTENSION
     Dosage: 600 MG (200 MG IN THE MORNING AND 400 MG IN THE EVENING), 1X/DAY
     Route: 048

REACTIONS (6)
  - RENAL FAILURE ACUTE [None]
  - IDIOPATHIC THROMBOCYTOPENIC PURPURA [None]
  - GINGIVAL BLEEDING [None]
  - EPISTAXIS [None]
  - THROMBOCYTOPENIA [None]
  - CHROMATURIA [None]
